FAERS Safety Report 5470750-7 (Version None)
Quarter: 2007Q3

REPORT INFORMATION
  Report Type: 
  Country: None (occurrence: None)
  Receive Date: 20070928
  Receipt Date: 20070921
  Transmission Date: 20080115
  Serious: Yes (Hospitalization)
  Sender: FDA-Public Use
  Company Number: US-AVENTIS-200718711GDDC

PATIENT
  Age: 54 Year
  Sex: Female

DRUGS (2)
  1. TAXOTERE [Suspect]
     Indication: UTERINE LEIOMYOSARCOMA
     Route: 042
     Dates: start: 20070907, end: 20070907
  2. GEMCITABINE HCL [Suspect]
     Indication: UTERINE LEIOMYOSARCOMA
     Route: 042
     Dates: start: 20070831, end: 20070907

REACTIONS (2)
  - BLOOD CREATININE INCREASED [None]
  - SEPSIS [None]
